FAERS Safety Report 5364207-1 (Version None)
Quarter: 2007Q2

REPORT INFORMATION
  Report Type: 
  Country: None (occurrence: None)
  Receive Date: 20070620
  Receipt Date: 20070615
  Transmission Date: 20071010
  Serious: Yes (Other)
  Sender: FDA-Public Use
  Company Number: US-PFIZER INC-2007049520

PATIENT
  Sex: Female
  Weight: 181.4 kg

DRUGS (13)
  1. CELEBREX [Suspect]
     Indication: ARTHRITIS
  2. CHANTIX [Suspect]
     Indication: EX-SMOKER
  3. NEOSPORIN [Suspect]
  4. ANTIBIOTICS [Suspect]
  5. ALL OTHER THERAPEUTIC PRODUCTS [Suspect]
     Indication: SKIN ULCER
  6. ENALAPRIL [Concomitant]
     Indication: HYPERTENSION
  7. FUROSEMIDE [Concomitant]
     Indication: HYPERTENSION
  8. PROZAC [Concomitant]
  9. AVANDAMET [Concomitant]
     Indication: DIABETES MELLITUS
  10. ZOCOR [Concomitant]
  11. ASCORBIC ACID [Concomitant]
  12. VITAMIN E [Concomitant]
  13. FLAXSEED OIL [Concomitant]

REACTIONS (7)
  - BLISTER [None]
  - HYPERSENSITIVITY [None]
  - ILL-DEFINED DISORDER [None]
  - PRURITUS [None]
  - RASH [None]
  - SKIN ULCER [None]
  - SWOLLEN TONGUE [None]
